FAERS Safety Report 10201061 (Version 2)
Quarter: 2014Q2

REPORT INFORMATION
  Report Type: Spontaneous
  Country: US (occurrence: US)
  Receive Date: 20140528
  Receipt Date: 20140626
  Transmission Date: 20141212
  Serious: No
  Sender: FDA-Public Use
  Company Number: US-ROXANE LABORATORIES, INC.-2014-RO-00806RO

PATIENT
  Sex: Female

DRUGS (5)
  1. METHADONE [Suspect]
     Indication: PAIN
     Route: 048
  2. VALIUM [Concomitant]
     Route: 065
  3. PLAQUENIL [Concomitant]
     Route: 065
  4. ALLEGRA D [Concomitant]
     Route: 065
  5. ZANAFLEX [Concomitant]
     Route: 065

REACTIONS (4)
  - Pleurisy [Not Recovered/Not Resolved]
  - Alopecia [Not Recovered/Not Resolved]
  - Drug ineffective [Not Recovered/Not Resolved]
  - Product quality issue [Not Recovered/Not Resolved]
